FAERS Safety Report 10767339 (Version 1)
Quarter: 2015Q1

REPORT INFORMATION
  Report Type: Spontaneous
  Country: US (occurrence: US)
  Receive Date: 20150205
  Receipt Date: 20150205
  Transmission Date: 20150721
  Serious: No
  Sender: FDA-Public Use
  Company Number: US-GALDERMA-US14001768

PATIENT
  Age: 15 Year
  Sex: Male

DRUGS (3)
  1. EPIDUO [Suspect]
     Active Substance: ADAPALENE\BENZOYL PEROXIDE
     Indication: ACNE
     Route: 061
     Dates: start: 20140331, end: 201404
  2. EPIDUO [Suspect]
     Active Substance: ADAPALENE\BENZOYL PEROXIDE
     Route: 061
     Dates: start: 201404, end: 201404
  3. NEUTROGENA SPORT SUNSCREEN SPF 70 [Concomitant]
     Indication: PROPHYLAXIS AGAINST SOLAR RADIATION
     Route: 061
     Dates: start: 20140331, end: 201405

REACTIONS (2)
  - Skin burning sensation [Recovered/Resolved]
  - Skin hypopigmentation [Recovering/Resolving]

NARRATIVE: CASE EVENT DATE: 20140402
